FAERS Safety Report 19031729 (Version 1)
Quarter: 2021Q1

REPORT INFORMATION
  Report Type: Spontaneous
  Country: US (occurrence: US)
  Receive Date: 20210319
  Receipt Date: 20210319
  Transmission Date: 20210420
  Serious: No
  Sender: FDA-Public Use
  Company Number: None

PATIENT
  Age: 72 Year
  Sex: Female
  Weight: 63.9 kg

DRUGS (12)
  1. ATENOLOL 25 MG [Suspect]
     Active Substance: ATENOLOL
     Indication: HYPERTENSION
     Dosage: ?          QUANTITY:90 TABLET(S);OTHER FREQUENCY:1 IN AM AND 1/2 PM;?
     Route: 048
  2. LEVALBUTEROL TARTRATE HFA INHALER [Concomitant]
     Active Substance: LEVALBUTEROL TARTRATE
  3. VITAMIN D3 [Concomitant]
     Active Substance: CHOLECALCIFEROL
  4. SPIRONOLACTONE. [Concomitant]
     Active Substance: SPIRONOLACTONE
  5. ATENOLOL 25 MG [Suspect]
     Active Substance: ATENOLOL
     Indication: HEART RATE INCREASED
     Dosage: ?          QUANTITY:90 TABLET(S);OTHER FREQUENCY:1 IN AM AND 1/2 PM;?
     Route: 048
  6. PLAVIX [Concomitant]
     Active Substance: CLOPIDOGREL BISULFATE
  7. CALCIUM [Concomitant]
     Active Substance: CALCIUM
  8. VOLTAREN [Concomitant]
     Active Substance: DICLOFENAC SODIUM
  9. QVAR [Concomitant]
     Active Substance: BECLOMETHASONE DIPROPIONATE
  10. LACTASE [Concomitant]
     Active Substance: LACTASE
  11. MAGNESIUM GLYCINATE [Concomitant]
     Active Substance: MAGNESIUM GLYCINATE
  12. CRESTOR [Concomitant]
     Active Substance: ROSUVASTATIN CALCIUM

REACTIONS (5)
  - Heart rate increased [None]
  - Blood pressure increased [None]
  - Oedema peripheral [None]
  - Manufacturing issue [None]
  - Product substitution issue [None]

NARRATIVE: CASE EVENT DATE: 20210317
